FAERS Safety Report 6238512-0 (Version None)
Quarter: 2009Q2

REPORT INFORMATION
  Report Type: 
  Country: None (occurrence: None)
  Receive Date: 20090622
  Receipt Date: 20090611
  Transmission Date: 20091009
  Serious: Yes (Hospitalization, Other)
  Sender: FDA-Public Use
  Company Number: IT-ELI_LILLY_AND_COMPANY-IT200906002818

PATIENT
  Sex: Female

DRUGS (3)
  1. BYETTA [Suspect]
     Indication: TYPE 2 DIABETES MELLITUS
     Dosage: 10 UG, DAILY (1/D)
     Route: 058
     Dates: start: 20081120, end: 20090318
  2. GLIBENCLAMIDE [Concomitant]
     Dosage: 7.5 MG, UNK
     Route: 048
     Dates: start: 19990101
  3. METFORMIN [Concomitant]
     Dosage: 2500 MG, UNK
     Route: 048
     Dates: start: 19990101

REACTIONS (1)
  - CERVIX CARCINOMA [None]
